FAERS Safety Report 6959777-3 (Version None)
Quarter: 2010Q3

REPORT INFORMATION
  Report Type: 
  Country: None (occurrence: None)
  Receive Date: 20100901
  Receipt Date: 20100823
  Transmission Date: 20110219
  Serious: No
  Sender: FDA-Public Use
  Company Number: US-BIOGENIDEC-2010BI029448

PATIENT
  Age: 55 Year
  Sex: Female

DRUGS (2)
  1. TYSABRI [Suspect]
     Indication: MULTIPLE SCLEROSIS
     Route: 042
     Dates: start: 20100415
  2. AVONEX [Concomitant]
     Indication: MULTIPLE SCLEROSIS
     Route: 030
     Dates: start: 20091012

REACTIONS (5)
  - ASTHENIA [None]
  - BLOOD URINE PRESENT [None]
  - DEPRESSION [None]
  - FATIGUE [None]
  - URINARY TRACT INFECTION [None]
